FAERS Safety Report 15433771 (Version 1)
Quarter: 2018Q3

REPORT INFORMATION
  Report Type: Spontaneous
  Country: US (occurrence: US)
  Receive Date: 20180922
  Receipt Date: 20180922
  Transmission Date: 20181010
  Serious: Yes (Disabling)
  Sender: FDA-Public Use
  Company Number: None

PATIENT
  Age: 44 Year
  Sex: Female

DRUGS (1)
  1. PARAGARD T 380A [Suspect]
     Active Substance: COPPER
     Dates: start: 20130815, end: 20180801

REACTIONS (5)
  - Haemorrhage [None]
  - Dizziness [None]
  - Anaemia [None]
  - Dyspnoea [None]
  - Weight increased [None]

NARRATIVE: CASE EVENT DATE: 20180108
